FAERS Safety Report 6251109-1 (Version None)
Quarter: 2009Q2

REPORT INFORMATION
  Report Type: 
  Country: None (occurrence: None)
  Receive Date: 20090630
  Receipt Date: 20090619
  Transmission Date: 20091009
  Serious: Yes (Hospitalization, Other)
  Sender: FDA-Public Use
  Company Number: US-AMGEN-QUU352319

PATIENT
  Sex: Female

DRUGS (3)
  1. ENBREL [Suspect]
     Indication: PSORIATIC ARTHROPATHY
     Route: 058
  2. ENBREL [Suspect]
     Indication: PSORIASIS
  3. METHOTREXATE [Concomitant]

REACTIONS (6)
  - ARTHRITIS [None]
  - FOOT DEFORMITY [None]
  - LOCALISED INFECTION [None]
  - MACULAR DEGENERATION [None]
  - PSORIASIS [None]
  - RETINAL OEDEMA [None]
